FAERS Safety Report 20683748 (Version 2)
Quarter: 2022Q2

REPORT INFORMATION
  Report Type: Spontaneous
  Country: US (occurrence: US)
  Receive Date: 20220407
  Receipt Date: 20220414
  Transmission Date: 20220721
  Serious: Yes (Other)
  Sender: FDA-Public Use
  Company Number: US-PFIZER INC-202200485836

PATIENT
  Age: 32 Year
  Sex: Female

DRUGS (1)
  1. BEVACIZUMAB [Suspect]
     Active Substance: BEVACIZUMAB
     Indication: Neurofibromatosis
     Dosage: UNK

REACTIONS (4)
  - Ischaemic cardiomyopathy [Unknown]
  - Coronary artery occlusion [Unknown]
  - Tachycardia [Unknown]
  - Off label use [Unknown]
